FAERS Safety Report 21747548 (Version 8)
Quarter: 2025Q4

REPORT INFORMATION
  Report Type: Report from Study
  Country: US (occurrence: US)
  Receive Date: 20221219
  Receipt Date: 20251201
  Transmission Date: 20260118
  Serious: Yes (Other)
  Sender: TAKEDA
  Company Number: US-TAKEDA-US201931957

PATIENT
  Age: 73 Year
  Sex: Male

DRUGS (1)
  1. HUMAN IMMUNOGLOBULIN G [Suspect]
     Active Substance: HUMAN IMMUNOGLOBULIN G
     Indication: Primary immunodeficiency syndrome
     Dosage: UNK

REACTIONS (14)
  - Basal cell carcinoma [Unknown]
  - Parkinson^s disease [Unknown]
  - Gait disturbance [Unknown]
  - Arthritis [Unknown]
  - Gastroenteritis viral [Unknown]
  - Fall [Unknown]
  - Product use issue [Unknown]
  - Insurance issue [Unknown]
  - Epistaxis [Unknown]
  - Asthma [Unknown]
  - Contusion [Unknown]
  - Cough [Unknown]
  - Back pain [Not Recovered/Not Resolved]
  - Sinusitis [Unknown]
